FAERS Safety Report 5726072-X (Version None)
Quarter: 2008Q2

REPORT INFORMATION
  Report Type: 
  Country: None (occurrence: None)
  Receive Date: 20080501
  Receipt Date: 20080501
  Transmission Date: 20081010
  Serious: No
  Sender: FDA-Public Use
  Company Number: None

PATIENT
  Age: 31 Year
  Sex: Female

DRUGS (4)
  1. PAROXETINE HCL [Suspect]
     Dosage: 20 MG, QD
  2. ALPRAZOLAM [Suspect]
     Dosage: 2 MG, QD 1 MG, BID
  3. ALCOHOL (ETHANOL) [Suspect]
  4. SERTRALINE [Suspect]
     Dosage: 25 MG, QID 50 MG, QID

REACTIONS (8)
  - AGITATION [None]
  - ALCOHOL POISONING [None]
  - DEPRESSION [None]
  - HOMICIDE [None]
  - INTENTIONAL OVERDOSE [None]
  - RESTLESSNESS [None]
  - SUICIDAL IDEATION [None]
  - TENSION [None]
